FAERS Safety Report 9813098 (Version 1)
Quarter: 2014Q1

REPORT INFORMATION
  Report Type: Spontaneous
  Country: US (occurrence: None)
  Receive Date: 20140110
  Receipt Date: 20140110
  Transmission Date: 20141002
  Serious: Yes (Other)
  Sender: FDA-Public Use
  Company Number: None

PATIENT
  Age: 37 Year
  Sex: Female
  Weight: 91.17 kg

DRUGS (1)
  1. ALLI [Suspect]
     Indication: WEIGHT DECREASED
     Dosage: 1 PILL, THREE TIMES DAILY, TAKEN BY MOUTH
     Route: 048

REACTIONS (1)
  - Cholelithiasis [None]
